FAERS Safety Report 15991594 (Version 1)
Quarter: 2019Q1

REPORT INFORMATION
  Report Type: Spontaneous
  Country: US (occurrence: US)
  Receive Date: 20190221
  Receipt Date: 20190221
  Transmission Date: 20190418
  Serious: No
  Sender: FDA-Public Use
  Company Number: US-TEVA-2019-US-1004675

PATIENT
  Age: 53 Year
  Sex: Male

DRUGS (2)
  1. LORAZEPAM ACTAVIS [Suspect]
     Active Substance: LORAZEPAM
     Indication: SLEEP DISORDER
  2. LORAZEPAM ACTAVIS [Suspect]
     Active Substance: LORAZEPAM
     Indication: ANXIETY
     Route: 065
     Dates: start: 20190104

REACTIONS (2)
  - Drug ineffective [Unknown]
  - Product substitution issue [Unknown]

NARRATIVE: CASE EVENT DATE: 20190108
